FAERS Safety Report 7568645-8 (Version None)
Quarter: 2011Q2

REPORT INFORMATION
  Report Type: 
  Country: None (occurrence: None)
  Receive Date: 20110623
  Receipt Date: 20110615
  Transmission Date: 20111010
  Serious: Yes (Other)
  Sender: FDA-Public Use
  Company Number: US-JNJFOC-20110511198

PATIENT

DRUGS (2)
  1. LEVAQUIN [Suspect]
     Indication: GASTROINTESTINAL INFECTION
     Dosage: 50 BOT
     Route: 065
     Dates: start: 20110407
  2. LEVAQUIN [Suspect]
     Route: 065

REACTIONS (5)
  - DYSGEUSIA [None]
  - DRUG INEFFECTIVE [None]
  - DIZZINESS [None]
  - PRODUCT COUNTERFEIT [None]
  - PHOTOSENSITIVITY REACTION [None]
